FAERS Safety Report 5642434-3 (Version None)
Quarter: 2008Q1

REPORT INFORMATION
  Report Type: 
  Country: None (occurrence: None)
  Receive Date: 20080228
  Receipt Date: 20080214
  Transmission Date: 20080703
  Serious: No
  Sender: FDA-Public Use
  Company Number: US-BAYER-200811924NA

PATIENT
  Age: 16 Year
  Sex: Female
  Weight: 71 kg

DRUGS (2)
  1. MIRENA [Suspect]
     Indication: CONTRACEPTION
     Route: 015
     Dates: start: 20071031, end: 20080122
  2. SERTRALINE HCL [Concomitant]
     Indication: POSTPARTUM DEPRESSION
     Route: 048
     Dates: start: 20070917, end: 20071117

REACTIONS (1)
  - IUCD COMPLICATION [None]
